FAERS Safety Report 10422731 (Version 4)
Quarter: 2016Q1

REPORT INFORMATION
  Report Type: Spontaneous
  Country: DE (occurrence: DE)
  Receive Date: 20140902
  Receipt Date: 20160110
  Transmission Date: 20160525
  Serious: Yes (Hospitalization, Other)
  Sender: FDA-Public Use
  Company Number: DE-AMGEN-DEUSP2014066086

PATIENT
  Age: 63 Year
  Sex: Male

DRUGS (3)
  1. CORTISONE [Suspect]
     Active Substance: CORTISONE\HYDROCORTISONE
     Indication: PAIN
     Dosage: UNK
     Route: 065
     Dates: start: 2014
  2. ENBREL [Suspect]
     Active Substance: ETANERCEPT
     Indication: RHEUMATOID ARTHRITIS
     Dosage: 50 MG, WEEKLY
     Route: 065
     Dates: start: 20140324
  3. MORPHINE [Concomitant]
     Active Substance: MORPHINE
     Indication: PAIN
     Dosage: UNK

REACTIONS (6)
  - Visual impairment [Unknown]
  - Arthralgia [Not Recovered/Not Resolved]
  - Sudden hearing loss [Unknown]
  - Pain [Not Recovered/Not Resolved]
  - Blood glucose increased [Unknown]
  - Rheumatic disorder [Not Recovered/Not Resolved]

NARRATIVE: CASE EVENT DATE: 2014
